FAERS Safety Report 8512055-3 (Version None)
Quarter: 2012Q3

REPORT INFORMATION
  Report Type: 
  Country: None (occurrence: None)
  Receive Date: 20120716
  Receipt Date: 20120710
  Transmission Date: 20120928
  Serious: Yes (Hospitalization)
  Sender: FDA-Public Use
  Company Number: US-PFIZER INC-2012166664

PATIENT
  Sex: Female

DRUGS (2)
  1. TOVIAZ [Suspect]
     Indication: URINARY INCONTINENCE
     Dosage: 8 MG, UNK
  2. TOVIAZ [Suspect]
     Indication: MICTURITION URGENCY
     Dosage: 4 MG, UNK

REACTIONS (1)
  - URINARY RETENTION [None]
